FAERS Safety Report 7529828-6 (Version None)
Quarter: 2011Q2

REPORT INFORMATION
  Report Type: 
  Country: None (occurrence: None)
  Receive Date: 20110607
  Receipt Date: 20110601
  Transmission Date: 20111010
  Serious: Yes (Other)
  Sender: FDA-Public Use
  Company Number: US-B.I. PHARMACEUTICALS,INC./RIDGEFIELD-2011-BP-08881BP

PATIENT
  Sex: Male

DRUGS (7)
  1. PRADAXA [Suspect]
     Indication: ATRIAL FIBRILLATION
     Dosage: 300 MG
     Route: 048
     Dates: start: 20110101
  2. AMLODIPINE [Concomitant]
  3. SOTALOL HCL [Concomitant]
  4. SIMVASTATIN [Concomitant]
     Indication: BLOOD CHOLESTEROL INCREASED
     Dosage: 20 MG
  5. ASPIRIN [Concomitant]
  6. NORVASC [Concomitant]
  7. BENICAR [Concomitant]

REACTIONS (3)
  - HYPERTENSION [None]
  - DYSPEPSIA [None]
  - CHEST PAIN [None]
